FAERS Safety Report 21295062 (Version 1)
Quarter: 2022Q3

REPORT INFORMATION
  Report Type: Spontaneous
  Country: US (occurrence: US)
  Receive Date: 20220905
  Receipt Date: 20220905
  Transmission Date: 20221027
  Serious: Yes (Other)
  Sender: FDA-Public Use
  Company Number: US-SA-SAC20220902000801

PATIENT
  Sex: Male

DRUGS (2)
  1. ZANTAC [Suspect]
     Active Substance: RANITIDINE HYDROCHLORIDE
     Dosage: UNK, PRESCRIPTION ZANTAC FROM APPROXIMATELY 1990 TO 2010
     Route: 048
     Dates: start: 1990, end: 2010
  2. ZANTAC [Suspect]
     Active Substance: RANITIDINE HYDROCHLORIDE
     Dosage: UNK,OVER THE COUNTER ZANTAC FROM APPROXIMATELY 1990 TO 2010
     Route: 048
     Dates: start: 1990, end: 2010

REACTIONS (1)
  - Prostate cancer [Unknown]
